FAERS Safety Report 9354659 (Version 1)
Quarter: 2013Q2

REPORT INFORMATION
  Report Type: Spontaneous
  Country: CA (occurrence: CA)
  Receive Date: 20130618
  Receipt Date: 20130618
  Transmission Date: 20140414
  Serious: Yes (Other)
  Sender: FDA-Public Use
  Company Number: CA-ELI_LILLY_AND_COMPANY-CA201306002786

PATIENT
  Age: 68 Year
  Sex: Female

DRUGS (17)
  1. FORTEO [Suspect]
     Indication: OSTEOPOROSIS
     Dosage: 20 UG, QD
     Route: 058
     Dates: start: 20130515
  2. SENNOSIDE [Concomitant]
     Dosage: UNK, UNKNOWN
     Route: 065
  3. GRAVOL [Concomitant]
     Dosage: UNK, UNKNOWN
     Route: 065
  4. PANTOLOC                           /01263204/ [Concomitant]
     Dosage: UNK, UNKNOWN
     Route: 065
  5. CALCITONIN [Concomitant]
     Dosage: UNK, UNKNOWN
     Route: 065
  6. MORPHINE SULPHATE [Concomitant]
     Dosage: UNK, UNKNOWN
     Route: 065
  7. VITAMIN D [Concomitant]
     Dosage: UNK, UNKNOWN
     Route: 065
  8. ACETAMINOPHEN [Concomitant]
     Dosage: UNK, UNKNOWN
     Route: 065
  9. EFFEXOR [Concomitant]
  10. LYRICA [Concomitant]
     Dosage: UNK, UNKNOWN
     Route: 065
  11. CALCIUM [Concomitant]
     Dosage: UNK, UNKNOWN
     Route: 065
  12. COLACE [Concomitant]
     Dosage: UNK, UNKNOWN
     Route: 065
  13. PLAQUENIL [Concomitant]
     Dosage: UNK, UNKNOWN
     Route: 065
  14. CELEBREX [Concomitant]
     Dosage: UNK, UNKNOWN
     Route: 065
  15. HEPARIN [Concomitant]
     Dosage: UNK, UNKNOWN
     Route: 065
  16. STATEX [Concomitant]
     Dosage: UNK, UNKNOWN
     Route: 065
  17. AZULFIDINE [Concomitant]
     Dosage: UNK, UNKNOWN
     Route: 065

REACTIONS (3)
  - Pelvic fracture [Not Recovered/Not Resolved]
  - Injection site haematoma [Not Recovered/Not Resolved]
  - Injection site hypersensitivity [Not Recovered/Not Resolved]
